FAERS Safety Report 11628076 (Version 2)
Quarter: 2015Q4

REPORT INFORMATION
  Report Type: Report from Study
  Country: NL (occurrence: NL)
  Receive Date: 20151014
  Receipt Date: 20151028
  Transmission Date: 20160304
  Serious: Yes (Death, Hospitalization, Other)
  Sender: FDA-Public Use
  Company Number: NL-CELGENE-NLD-2015094733

PATIENT
  Age: 82 Year
  Sex: Female
  Weight: 66 kg

DRUGS (23)
  1. BRILIQUE [Concomitant]
     Active Substance: TICAGRELOR
     Route: 048
     Dates: start: 20150910, end: 20150911
  2. VALACICLOVIR [Concomitant]
     Active Substance: VALACYCLOVIR HYDROCHLORIDE
     Indication: PROPHYLAXIS
     Route: 048
     Dates: start: 20150824
  3. DEFERASIROX [Concomitant]
     Active Substance: DEFERASIROX
     Indication: IRON OVERLOAD
     Route: 048
     Dates: start: 20150824, end: 20150921
  4. AZACITIDINE. [Suspect]
     Active Substance: AZACITIDINE
     Dosage: 38MG/M2
     Route: 058
     Dates: start: 20150729, end: 20150804
  5. AZACITIDINE. [Suspect]
     Active Substance: AZACITIDINE
     Dosage: 38MG/M2
     Route: 058
     Dates: end: 20150921
  6. EXJADE [Concomitant]
     Active Substance: DEFERASIROX
     Route: 048
     Dates: start: 20150411
  7. FUROSEMIDE. [Concomitant]
     Active Substance: FUROSEMIDE
     Indication: CARDIAC FAILURE
     Route: 041
     Dates: start: 20150825, end: 20150825
  8. CIPROFLOXACINE [Concomitant]
     Active Substance: CIPROFLOXACIN
     Indication: PANCYTOPENIA
     Dosage: 2.5 MILLIGRAM
     Route: 048
     Dates: start: 20150911
  9. AZACITIDINE. [Suspect]
     Active Substance: AZACITIDINE
     Dosage: 38MG/M2
     Route: 058
     Dates: start: 20150826, end: 20150901
  10. DOMPERIDONE [Concomitant]
     Active Substance: DOMPERIDONE
     Indication: NAUSEA
     Route: 048
     Dates: start: 20150820, end: 20150824
  11. FUROSEMIDE. [Concomitant]
     Active Substance: FUROSEMIDE
     Route: 041
     Dates: start: 20150825, end: 20150825
  12. THYRAX [Concomitant]
     Active Substance: LEVOTHYROXINE
     Route: 048
  13. FLUCONAZOL [Concomitant]
     Active Substance: FLUCONAZOLE
     Indication: PROPHYLAXIS
     Dosage: 30 MILLIGRAM
     Route: 048
     Dates: start: 20150824, end: 20150917
  14. ZELITREX [Concomitant]
     Active Substance: VALACYCLOVIR HYDROCHLORIDE
     Indication: PROPHYLAXIS
     Route: 048
     Dates: start: 20150824
  15. BRILIQUE [Concomitant]
     Active Substance: TICAGRELOR
     Indication: PROPHYLAXIS
     Dosage: 3600 MILLIGRAM
     Route: 048
     Dates: start: 20150629
  16. CIPROFLOXACINE [Concomitant]
     Active Substance: CIPROFLOXACIN
     Route: 048
     Dates: start: 20150629, end: 20150919
  17. AZACITIDINE. [Suspect]
     Active Substance: AZACITIDINE
     Indication: MYELODYSPLASTIC SYNDROME
     Dosage: 75MG/M2
     Route: 058
     Dates: start: 20150408, end: 20150414
  18. THYRAX [Concomitant]
     Active Substance: LEVOTHYROXINE
     Indication: THYROID DISORDER
     Dosage: MCG
     Route: 048
     Dates: start: 20150629
  19. FLUCONAZOL [Concomitant]
     Active Substance: FLUCONAZOLE
     Dosage: 400 MILLIGRAM
     Route: 048
     Dates: start: 20150820, end: 20150921
  20. EXJADE [Concomitant]
     Active Substance: DEFERASIROX
     Indication: IRON OVERLOAD
     Dosage: 250 MILLIGRAM
     Route: 048
     Dates: start: 20150824, end: 20150918
  21. PANTOPRAZOL [Concomitant]
     Active Substance: PANTOPRAZOLE SODIUM
     Indication: PROPHYLAXIS
     Dosage: 100 MILLIGRAM
     Route: 048
     Dates: start: 20150629
  22. ONDANSETRON [Concomitant]
     Active Substance: ONDANSETRON
     Indication: ANTIEMETIC SUPPORTIVE CARE
     Route: 065
     Dates: start: 20150504
  23. CARBASALAATCALCIUM [Concomitant]
     Active Substance: CARBASALATE
     Indication: ANGINA PECTORIS
     Route: 048
     Dates: start: 20150629

REACTIONS (8)
  - Hepatic failure [Fatal]
  - Atrial flutter [Not Recovered/Not Resolved]
  - Atrial fibrillation [Not Recovered/Not Resolved]
  - Haematuria [Not Recovered/Not Resolved]
  - Angina pectoris [Recovered/Resolved]
  - Supraventricular tachycardia [Not Recovered/Not Resolved]
  - Blood bilirubin increased [Not Recovered/Not Resolved]
  - Hyponatraemia [Not Recovered/Not Resolved]

NARRATIVE: CASE EVENT DATE: 20150907
